FAERS Safety Report 7930093-6 (Version None)
Quarter: 2011Q4

REPORT INFORMATION
  Report Type: 
  Country: None (occurrence: None)
  Receive Date: 20111117
  Receipt Date: 20111102
  Transmission Date: 20120403
  Serious: Yes (Hospitalization)
  Sender: FDA-Public Use
  Company Number: UTC-011404

PATIENT
  Age: 57 Year
  Sex: Female
  Weight: 78.64 kg

DRUGS (4)
  1. REVATIO [Concomitant]
  2. COUMADIN [Concomitant]
  3. DIURETICS (DIURETICS) [Concomitant]
  4. REMODULIN [Suspect]
     Indication: COR PULMONALE CHRONIC
     Dosage: (0.0271 UG/KG), INTRAVENOUS
     Route: 042
     Dates: start: 20110428

REACTIONS (3)
  - INJECTION SITE ERYTHEMA [None]
  - DIARRHOEA [None]
  - PYREXIA [None]
